FAERS Safety Report 20525504 (Version 1)
Quarter: 2022Q1

REPORT INFORMATION
  Report Type: Report from Study
  Country: FR (occurrence: FR)
  Receive Date: 20220228
  Receipt Date: 20220228
  Transmission Date: 20220423
  Serious: Yes (Hospitalization)
  Sender: FDA-Public Use
  Company Number: FR-SERVIER-S22001882

PATIENT

DRUGS (8)
  1. PEGASPARGASE [Suspect]
     Active Substance: PEGASPARGASE
     Indication: Acute lymphocytic leukaemia
     Dosage: 3380 IU, D12
     Route: 042
     Dates: start: 20211228
  2. TN UNSPECIFIED [Concomitant]
     Indication: Acute lymphocytic leukaemia
     Dosage: 13.5 MG, D8 TO D28
     Route: 048
     Dates: start: 20211224
  3. TN UNSPECIFIED [Concomitant]
     Indication: Acute lymphocytic leukaemia
     Dosage: 2 MG, D8, D15, D22
     Route: 042
     Dates: start: 20211224
  4. TN UNSPECIFIED [Concomitant]
     Indication: Acute lymphocytic leukaemia
     Dosage: 40 MG, D8, D15, D22
     Route: 042
     Dates: start: 20211224
  5. TN UNSPECIFIED [Concomitant]
     Indication: Acute lymphocytic leukaemia
     Dosage: 15 MG, D9, D13, D18
     Route: 037
     Dates: start: 20211225
  6. TN UNSPECIFIED [Concomitant]
     Indication: Constipation prophylaxis
     Dosage: 10 G
     Route: 048
     Dates: start: 20211223
  7. TN UNSPECIFIED [Concomitant]
     Indication: Abdominal pain
     Dosage: 160 MG
     Route: 048
     Dates: start: 20211223
  8. TN UNSPECIFIED [Concomitant]
     Indication: Pain
     Dosage: 3 G
     Route: 048
     Dates: start: 20211223

REACTIONS (2)
  - Aplasia [Not Recovered/Not Resolved]
  - Abdominal pain [Not Recovered/Not Resolved]

NARRATIVE: CASE EVENT DATE: 20220106
